FAERS Safety Report 4279191-1 (Version None)
Quarter: 2004Q1

REPORT INFORMATION
  Report Type: 
  Country: None (occurrence: None)
  Receive Date: 20040127
  Receipt Date: 20040114
  Transmission Date: 20041129
  Serious: Yes (Death)
  Sender: FDA-Public Use
  Company Number: GB-BRISTOL-MYERS SQUIBB COMPANY-12477188

PATIENT
  Age: 56 Year
  Sex: Female

DRUGS (3)
  1. CARBOPLATIN [Suspect]
     Indication: OVARIAN CANCER
     Route: 042
     Dates: start: 20031208, end: 20031229
  2. PACLITAXEL [Suspect]
     Indication: OVARIAN CANCER
     Route: 042
     Dates: start: 20031208, end: 20031229
  3. DOXORUBICIN HCL LIPOSOME [Suspect]
     Indication: OVARIAN CANCER
     Route: 042
     Dates: start: 20031208, end: 20031208

REACTIONS (3)
  - CARDIAC DISORDER [None]
  - CIRCULATORY COLLAPSE [None]
  - DEATH [None]
